FAERS Safety Report 8605417-7 (Version None)
Quarter: 2012Q3

REPORT INFORMATION
  Report Type: 
  Country: None (occurrence: None)
  Receive Date: 20120820
  Receipt Date: 20120803
  Transmission Date: 20120928
  Serious: Yes (Death)
  Sender: FDA-Public Use
  Company Number: IE-JNJFOC-20120405457

PATIENT
  Sex: Male
  Weight: 143 kg

DRUGS (10)
  1. XARELTO [Suspect]
     Indication: KNEE ARTHROPLASTY
     Route: 048
     Dates: start: 20120405, end: 20120407
  2. PANTOPRAZOLE [Concomitant]
     Route: 048
  3. TARGIN [Concomitant]
     Route: 048
  4. ACETAMINOPHEN [Concomitant]
     Route: 048
  5. MORPHINE [Concomitant]
     Route: 030
  6. DICLOFENAC [Concomitant]
     Route: 048
  7. ENOXAPARIN SODIUM [Concomitant]
     Route: 058
     Dates: start: 20120403, end: 20120404
  8. PROCHLORPERAZINE [Concomitant]
     Route: 030
  9. CARDIOCOR [Concomitant]
     Route: 048
  10. XARELTO [Suspect]
     Indication: THROMBOSIS PROPHYLAXIS
     Route: 048
     Dates: start: 20120405, end: 20120407

REACTIONS (2)
  - PULMONARY EMBOLISM [None]
  - CIRCULATORY COLLAPSE [None]
